FAERS Safety Report 18054110 (Version 1)
Quarter: 2020Q3

REPORT INFORMATION
  Report Type: Spontaneous
  Country: FR (occurrence: FR)
  Receive Date: 20200722
  Receipt Date: 20200722
  Transmission Date: 20201103
  Serious: Yes (Other)
  Sender: FDA-Public Use
  Company Number: NVSC2020FR204576

PATIENT
  Sex: Male

DRUGS (3)
  1. VALSARTAN. [Suspect]
     Active Substance: VALSARTAN
     Indication: HYPERTENSION
     Dosage: STARTED BEFORE 2012, HALF TABLET OF 40MG IN THE MORNING
     Route: 065
  2. VALSARTAN. [Suspect]
     Active Substance: VALSARTAN
     Dosage: STARTED BEFORE 2012, 80 MG, AT NOON
     Route: 065
  3. NEBIVOLOL. [Concomitant]
     Active Substance: NEBIVOLOL
     Indication: PRODUCT USED FOR UNKNOWN INDICATION
     Dosage: UNK
     Route: 065

REACTIONS (4)
  - Bradycardia [Unknown]
  - Somnolence [Unknown]
  - Weight increased [Unknown]
  - Dizziness [Unknown]
